FAERS Safety Report 10065233 (Version 1)
Quarter: 2014Q2

REPORT INFORMATION
  Report Type: Spontaneous
  Country: DE (occurrence: DE)
  Receive Date: 20140408
  Receipt Date: 20140408
  Transmission Date: 20141212
  Serious: Yes (Hospitalization)
  Sender: FDA-Public Use
  Company Number: DE-PFIZER INC-2014097384

PATIENT
  Age: 78 Year
  Sex: Female

DRUGS (2)
  1. AMIODARONE HCL [Suspect]
     Indication: ATRIAL FIBRILLATION
     Dosage: 200 MG, DAILY (1 IN 1 DAY)
     Route: 048
     Dates: start: 201305, end: 201403
  2. PHENPROCOUMON [Concomitant]
     Dosage: UNK

REACTIONS (1)
  - Pneumonitis [Unknown]
